FAERS Safety Report 7392713-7 (Version None)
Quarter: 2011Q2

REPORT INFORMATION
  Report Type: 
  Country: None (occurrence: None)
  Receive Date: 20110404
  Receipt Date: 20110401
  Transmission Date: 20111010
  Serious: Yes (Life-Threatening, Hospitalization, Other)
  Sender: FDA-Public Use
  Company Number: US-PFIZER INC-2009200106

PATIENT
  Sex: Male
  Weight: 102 kg

DRUGS (15)
  1. COUMADIN [Suspect]
     Dosage: UNK
     Route: 048
     Dates: start: 20080101
  2. DIGOXIN [Concomitant]
     Dosage: 0.25 MG, 1X/DAY
     Route: 048
     Dates: start: 20080101
  3. PLAVIX [Concomitant]
     Dosage: 75 MG, 1X/DAY
     Route: 048
     Dates: start: 20020101, end: 20090512
  4. FOSINOPRIL [Concomitant]
     Dosage: 20 MG, UNK
     Dates: start: 20090513
  5. TOPROL-XL [Concomitant]
     Dosage: 50 MG, 2X/DAY
     Route: 048
     Dates: start: 19980101
  6. BLINDED EPLERENONE [Suspect]
     Indication: CARDIAC FAILURE CONGESTIVE
     Dosage: UNK MG, 1X/DAY
     Route: 048
     Dates: start: 20080709, end: 20090416
  7. BLINDED NO SUBJECT DRUG [Suspect]
     Indication: CARDIAC FAILURE CONGESTIVE
     Dosage: UNK MG, 1X/DAY
     Route: 048
     Dates: start: 20080709, end: 20090416
  8. BLINDED PLACEBO [Suspect]
     Indication: CARDIAC FAILURE CONGESTIVE
     Dosage: UNK MG, 1X/DAY
     Route: 048
     Dates: start: 20080709, end: 20090416
  9. LASIX [Concomitant]
     Dosage: 40 MG, 1X/DAY
     Route: 048
     Dates: start: 20090202
  10. KLOR-CON [Concomitant]
     Dosage: 10 MG, 1X/DAY
     Route: 048
     Dates: start: 20090202
  11. BLINDED NO SUBJECT DRUG [Suspect]
     Dosage: UNK
     Dates: start: 20090511, end: 20090512
  12. BLINDED PLACEBO [Suspect]
     Dosage: UNK
     Dates: start: 20090511, end: 20090512
  13. BLINDED EPLERENONE [Suspect]
     Dosage: UNK
     Dates: start: 20090511, end: 20090512
  14. FOSINOPRIL [Concomitant]
     Dosage: 10 MG, UNK
     Route: 048
     Dates: start: 20081211, end: 20090512
  15. DILANTIN [Concomitant]
     Dosage: 100 MG, 1X/DAY
     Route: 048
     Dates: start: 19920101

REACTIONS (4)
  - RENAL FAILURE [None]
  - COAGULOPATHY [None]
  - HYPOTENSION [None]
  - DEHYDRATION [None]
